FAERS Safety Report 24843586 (Version 2)
Quarter: 2025Q4

REPORT INFORMATION
  Report Type: Report from Study
  Country: CA (occurrence: CA)
  Receive Date: 20250115
  Receipt Date: 20251226
  Transmission Date: 20260117
  Serious: Yes (Other)
  Sender: AMGEN
  Company Number: CA-Vifor (International) Inc.-VIT-2024-00523

PATIENT
  Age: 63 Year
  Sex: Female

DRUGS (1)
  1. AVACOPAN [Suspect]
     Active Substance: AVACOPAN
     Indication: Anti-neutrophil cytoplasmic antibody positive vasculitis
     Dosage: THREE 10 MG TABLETS TWICE DAILY
     Route: 048
     Dates: start: 20231222

REACTIONS (8)
  - Blindness transient [Recovered/Resolved]
  - Migraine [Recovered/Resolved]
  - Pruritus [Recovered/Resolved]
  - Vision blurred [Recovered/Resolved]
  - Eczema asteatotic [Unknown]
  - Dry skin [Recovered/Resolved]
  - Vomiting [Recovered/Resolved]
  - Therapy cessation [Unknown]
